FAERS Safety Report 14375495 (Version 5)
Quarter: 2018Q2

REPORT INFORMATION
  Report Type: Spontaneous
  Country: US (occurrence: US)
  Receive Date: 20180111
  Receipt Date: 20180416
  Transmission Date: 20180711
  Serious: Yes (Hospitalization, Other)
  Sender: FDA-Public Use
  Company Number: US-PFIZER INC-2018011365

PATIENT
  Age: 17 Year
  Sex: Female

DRUGS (6)
  1. TOPAMAX [Concomitant]
     Active Substance: TOPIRAMATE
     Dosage: 50 MG, 2X/DAY
     Route: 048
     Dates: start: 20150401
  2. GEODON [Suspect]
     Active Substance: ZIPRASIDONE HYDROCHLORIDE\ZIPRASIDONE MESYLATE
     Indication: BIPOLAR I DISORDER
     Dosage: 40 MG, 2X/DAY
     Route: 048
     Dates: start: 20131104, end: 20140114
  3. TOPAMAX [Concomitant]
     Active Substance: TOPIRAMATE
     Indication: BIPOLAR I DISORDER
     Dosage: 50 MG, UNK
     Dates: start: 2008, end: 2017
  4. TOPAMAX [Concomitant]
     Active Substance: TOPIRAMATE
     Dosage: 50 MG, 1X/DAY (EVERY NIGHT AT BEDTIME)
     Route: 048
     Dates: start: 20131021, end: 20150331
  5. GEODON [Suspect]
     Active Substance: ZIPRASIDONE HYDROCHLORIDE\ZIPRASIDONE MESYLATE
     Dosage: 80 MG, 2X/DAY
     Route: 048
     Dates: end: 20151214
  6. GEODON [Suspect]
     Active Substance: ZIPRASIDONE HYDROCHLORIDE\ZIPRASIDONE MESYLATE
     Dosage: 60 MG, 2X/DAY
     Route: 048
     Dates: start: 20140115, end: 20150729

REACTIONS (10)
  - Prosopagnosia [Recovered/Resolved]
  - Paranoia [Unknown]
  - Agitation [Recovered/Resolved]
  - Loss of personal independence in daily activities [Recovered/Resolved]
  - Blood pressure abnormal [Recovered/Resolved]
  - Delusion [Recovered/Resolved]
  - Mania [Unknown]
  - Anxiety [Recovered/Resolved]
  - Dysarthria [Recovered/Resolved]
  - Hallucinations, mixed [Recovered/Resolved]

NARRATIVE: CASE EVENT DATE: 2015
